FAERS Safety Report 18336176 (Version 2)
Quarter: 2020Q4

REPORT INFORMATION
  Report Type: Spontaneous
  Country: BE (occurrence: BE)
  Receive Date: 20201001
  Receipt Date: 20201006
  Transmission Date: 20210113
  Serious: Yes (Hospitalization)
  Sender: FDA-Public Use
  Company Number: BE-JNJFOC-20200942173

PATIENT
  Age: 23 Year
  Sex: Male

DRUGS (1)
  1. PARACETAMOL [Suspect]
     Active Substance: ACETAMINOPHEN
     Indication: PRODUCT USED FOR UNKNOWN INDICATION
     Dosage: AFTER INGESTION OF 10 G OF IMMEDIATE RELEASE ACETAMINOPHEN OVER A 6 HOUR PERIOD
     Route: 048

REACTIONS (5)
  - Renal tubular necrosis [Recovering/Resolving]
  - Hepatic enzyme increased [Unknown]
  - Acute kidney injury [Recovering/Resolving]
  - Overdose [Unknown]
  - International normalised ratio increased [Unknown]
